FAERS Safety Report 16708396 (Version 1)
Quarter: 2019Q3

REPORT INFORMATION
  Report Type: Spontaneous
  Country: ES (occurrence: ES)
  Receive Date: 20190816
  Receipt Date: 20190816
  Transmission Date: 20191004
  Serious: Yes (Other)
  Sender: FDA-Public Use
  Company Number: ES-SUN PHARMACEUTICAL INDUSTRIES LTD-2019RR-203111

PATIENT
  Age: 52 Year
  Sex: Female

DRUGS (4)
  1. LETROZOLE. [Suspect]
     Active Substance: LETROZOLE
     Indication: BREAST CANCER
     Dosage: UNK
     Route: 065
  2. PALBOCICLIB [Suspect]
     Active Substance: PALBOCICLIB
     Indication: BREAST CANCER
     Dosage: UNK
     Route: 065
     Dates: start: 201703
  3. TAMOXIFEN [Concomitant]
     Active Substance: TAMOXIFEN
     Indication: ADJUVANT THERAPY
     Dosage: 20 MG, QD (20 MG/DX5 Y)
     Route: 065
     Dates: start: 2013
  4. FULVESTRANT. [Suspect]
     Active Substance: FULVESTRANT
     Indication: BREAST CANCER
     Dosage: UNK
     Route: 065
     Dates: start: 201703

REACTIONS (2)
  - Lymphadenopathy [Unknown]
  - Neutropenia [Unknown]

NARRATIVE: CASE EVENT DATE: 201710
